FAERS Safety Report 4345317-4 (Version None)
Quarter: 2004Q2

REPORT INFORMATION
  Report Type: 
  Country: None (occurrence: None)
  Receive Date: 20040423
  Receipt Date: 20040412
  Transmission Date: 20050107
  Serious: Yes (Hospitalization)
  Sender: FDA-Public Use
  Company Number: PT-GLAXOSMITHKLINE-B0330212A

PATIENT
  Age: 80 Year
  Sex: Female
  Weight: 57.5 kg

DRUGS (7)
  1. VALTREX [Suspect]
     Indication: HERPES SIMPLEX
     Dosage: 1G PER DAY
     Route: 048
     Dates: start: 20040305, end: 20040308
  2. LEVOTHYROXINE SODIUM [Concomitant]
     Indication: HYPOTHYROIDISM
     Dosage: .1MG PER DAY
     Route: 048
     Dates: start: 20031201
  3. ACETAMINOPHEN [Concomitant]
     Indication: PAIN
     Dosage: 3000MG PER DAY
     Route: 048
     Dates: start: 20031201
  4. SALBUTAMOL SULPHATE + IPRATROPIUM BROMIDE [Concomitant]
     Indication: CHRONIC OBSTRUCTIVE AIRWAYS DISEASE
     Dosage: 3U PER DAY
     Route: 055
     Dates: start: 20031201
  5. OMEPRAZOLE [Concomitant]
     Dosage: 20MG PER DAY
     Route: 048
     Dates: start: 20040122
  6. UNKNOWN MEDICATION [Concomitant]
     Indication: INSOMNIA
     Dosage: .5MG PER DAY
     Route: 048
     Dates: start: 20040122
  7. HAEMODIALYSIS [Concomitant]

REACTIONS (1)
  - NEUROTOXICITY [None]
